FAERS Safety Report 20004501 (Version 1)
Quarter: 2021Q4

REPORT INFORMATION
  Report Type: Spontaneous
  Country: CA (occurrence: CA)
  Receive Date: 20211027
  Receipt Date: 20211027
  Transmission Date: 20220304
  Serious: Yes (Hospitalization)
  Sender: FDA-Public Use
  Company Number: CA-TEVA-2021-CA-1969682

PATIENT
  Sex: Female

DRUGS (4)
  1. ETOPOSIDE [Suspect]
     Active Substance: ETOPOSIDE
     Indication: Neoplasm
     Dosage: 100 MG/M2 DAILY;
     Route: 042
  2. KETOCONAZOLE [Suspect]
     Active Substance: KETOCONAZOLE
     Indication: Neoplasm
     Dosage: 700 MG/M2 DAILY;
     Route: 048
  3. METRONIDAZOLE [Suspect]
     Active Substance: METRONIDAZOLE
     Indication: Neoplasm
     Route: 054
  4. METRONIDAZOLE [Suspect]
     Active Substance: METRONIDAZOLE
     Route: 048

REACTIONS (3)
  - Asthenia [Recovered/Resolved]
  - Bedridden [Recovered/Resolved]
  - Musculoskeletal stiffness [Recovered/Resolved]
